FAERS Safety Report 6772402 (Version 1)
Quarter: 2020Q3

REPORT INFORMATION
  Report Type: Spontaneous
  Country: US (occurrence: US)
  Receive Date: 20080926
  Receipt Date: 20080926
  Transmission Date: 20201105
  Serious: Yes (Death)
  Sender: FDA-Public Use
  Company Number: US-BAXTER-2008BH009754

PATIENT
  Age: 89 Year
  Sex: Female
  Weight: 46 kg

DRUGS (4)
  1. AZITHROMYCIN ANHYDROUS. [Concomitant]
     Active Substance: AZITHROMYCIN ANHYDROUS
     Indication: PNEUMONIA
     Route: 042
     Dates: start: 200805, end: 200805
  2. CEFTRIAXONE. [Concomitant]
     Active Substance: CEFTRIAXONE
     Indication: PNEUMONIA
     Route: 042
     Dates: start: 200805, end: 200805
  3. PHENERGAN [Suspect]
     Active Substance: PROMETHAZINE HYDROCHLORIDE
     Indication: NAUSEA
     Route: 042
     Dates: start: 20080525, end: 20080525
  4. IBANDRONIC ACID. [Suspect]
     Active Substance: IBANDRONIC ACID
     Route: 065

REACTIONS (6)
  - Cardiac arrest [Fatal]
  - Product administration error [Fatal]
  - Mental status changes [Fatal]
  - Apnoea [Fatal]
  - Unresponsive to stimuli [Fatal]
  - Bradycardia [Fatal]

NARRATIVE: CASE EVENT DATE: 20080525
